FAERS Safety Report 18992309 (Version 2)
Quarter: 2022Q1

REPORT INFORMATION
  Report Type: Spontaneous
  Country: US (occurrence: US)
  Receive Date: 20210310
  Receipt Date: 20220207
  Transmission Date: 20220423
  Serious: No
  Sender: FDA-Public Use
  Company Number: US-JNJFOC-20210248560

PATIENT
  Age: 48 Year
  Sex: Female

DRUGS (1)
  1. WOMENS ROGAINE [Suspect]
     Active Substance: MINOXIDIL
     Indication: Alopecia
     Dosage: 1 DROPPER
     Route: 061
     Dates: start: 20210222

REACTIONS (2)
  - Application site vesicles [Recovering/Resolving]
  - Application site dermatitis [Recovering/Resolving]

NARRATIVE: CASE EVENT DATE: 20210222
